FAERS Safety Report 6244931-9 (Version None)
Quarter: 2009Q2

REPORT INFORMATION
  Report Type: 
  Country: None (occurrence: None)
  Receive Date: 20090619
  Receipt Date: 20090227
  Transmission Date: 20091009
  Serious: No
  Sender: FDA-Public Use
  Company Number: ALL1-2009-00535

PATIENT
  Age: 44 Year
  Sex: Female
  Weight: 74.8 kg

DRUGS (3)
  1. ADDERALL XR 10 [Suspect]
     Indication: PANIC DISORDER
     Dosage: 20 MG, 1X/DAY:QD, ORAL
     Route: 048
     Dates: start: 20050101, end: 20080101
  2. VYVANSE [Suspect]
     Indication: PANIC DISORDER
     Dosage: 50 MG, 1X/DAY:QD, ORAL
     Route: 048
     Dates: start: 20080101
  3. KLONOPIN [Concomitant]

REACTIONS (3)
  - ANXIETY [None]
  - NERVOUSNESS [None]
  - OFF LABEL USE [None]
